FAERS Safety Report 11466888 (Version 1)
Quarter: 2015Q3

REPORT INFORMATION
  Report Type: Report from Study
  Country: US (occurrence: US)
  Receive Date: 20150908
  Receipt Date: 20150908
  Transmission Date: 20151125
  Serious: Yes (Other)
  Sender: FDA-Public Use
  Company Number: US-ROCHE-1630272

PATIENT
  Sex: Female
  Weight: 57.2 kg

DRUGS (4)
  1. RITUXAN [Suspect]
     Active Substance: RITUXIMAB
     Indication: LYMPHOMA
     Dosage: ON 08/JUL/2015, MOST RECENT DOSE OF RITUXMAB WAS RECEIVED.
     Route: 042
     Dates: start: 20150610
  2. BACLOFEN. [Concomitant]
     Active Substance: BACLOFEN
     Indication: MULTIPLE SCLEROSIS
     Dosage: WAS TAKING BEFORE RITUXAN
     Route: 048
  3. ESTRACE [Concomitant]
     Active Substance: ESTRADIOL
     Indication: PRODUCT USED FOR UNKNOWN INDICATION
     Dosage: USING BEFORE RITUXAN
     Route: 067
  4. PEPCID [Concomitant]
     Active Substance: FAMOTIDINE
     Dosage: STARTING TAKING SINCE ON RITUXAN
     Route: 065

REACTIONS (5)
  - Hot flush [Not Recovered/Not Resolved]
  - Asthenia [Not Recovered/Not Resolved]
  - Epigastric discomfort [Unknown]
  - Feeling hot [Not Recovered/Not Resolved]
  - Night sweats [Not Recovered/Not Resolved]
